FAERS Safety Report 6555610-2 (Version None)
Quarter: 2010Q1

REPORT INFORMATION
  Report Type: 
  Country: None (occurrence: None)
  Receive Date: 20100128
  Receipt Date: 20100125
  Transmission Date: 20100710
  Serious: Yes (Death, Life-Threatening, Hospitalization, Other)
  Sender: FDA-Public Use
  Company Number: GB-BRISTOL-MYERS SQUIBB COMPANY-14702617

PATIENT
  Age: 79 Year
  Sex: Female
  Weight: 50 kg

DRUGS (11)
  1. HYDROXYCARBAMIDE [Suspect]
     Indication: ESSENTIAL THROMBOCYTHAEMIA
     Dosage: 09OCT08-MAR09:1G,SEP08-23SEP:500 MG,24SEP08-08OCT08 INCREASED TO 500/1000 MG ALTERNATIVE DAYS-1G
     Route: 048
     Dates: start: 20080901, end: 20081009
  2. ALLOPURINOL [Concomitant]
     Indication: GOUT
  3. ALLOPURINOL [Concomitant]
     Indication: PROPHYLAXIS
  4. AMLODIPINE [Concomitant]
     Indication: HYPERTENSION
  5. CITALOPRAM [Concomitant]
     Indication: DEPRESSION
  6. ATENOLOL [Concomitant]
     Dates: start: 20071030
  7. ETORICOXIB [Concomitant]
     Dates: start: 20071030
  8. SIMVASTATIN [Concomitant]
     Indication: BLOOD CHOLESTEROL INCREASED
     Dates: start: 20071030
  9. WARFARIN SODIUM [Concomitant]
     Indication: THROMBOSIS
     Dates: start: 20080701
  10. ADCAL-D3 [Concomitant]
     Dates: start: 20071214
  11. ALENDRONIC ACID [Concomitant]
     Dates: start: 20071214

REACTIONS (8)
  - ANAEMIA [None]
  - DEATH [None]
  - DUODENAL ULCER PERFORATION [None]
  - IMPAIRED HEALING [None]
  - MACROCYTOSIS [None]
  - NEUTROPENIA [None]
  - NEUTROPHIL HYPERSEGMENTED MORPHOLOGY PRESENT [None]
  - SEPSIS [None]
